FAERS Safety Report 7611460-7 (Version None)
Quarter: 2011Q3

REPORT INFORMATION
  Report Type: 
  Country: None (occurrence: None)
  Receive Date: 20110707
  Receipt Date: 20110630
  Transmission Date: 20111222
  Serious: Yes (Hospitalization)
  Sender: FDA-Public Use
  Company Number: WAES 0910USA03332

PATIENT
  Age: 54 Year
  Sex: Female
  Weight: 64.4108 kg

DRUGS (17)
  1. LUNESTA [Concomitant]
  2. DECADRON [Suspect]
     Indication: CHEMOTHERAPY CYTOKINE PROPHYLAXIS
     Dosage: 20 MG, PO
     Route: 048
     Dates: start: 20090720, end: 20090721
  3. ADVAIR DISKUS 100/50 [Concomitant]
  4. CARBOPLATIN [Suspect]
     Indication: NON-SMALL CELL LUNG CANCER
     Dosage: 543 MG, Q3W, IV
     Route: 042
     Dates: start: 20090609, end: 20090901
  5. CP-751,871 [Suspect]
     Indication: NON-SMALL CELL LUNG CANCER
     Dosage: 1320 MG, Q3W, IV
     Route: 042
     Dates: start: 20090609, end: 20090901
  6. DARVOCET-N 50 [Concomitant]
  7. NOVOLOG [Concomitant]
  8. FOLIC ACID [Concomitant]
  9. PREDNISONE [Suspect]
     Indication: DYSPNOEA
     Dosage: 20; 10 MG, DAILY
     Dates: start: 20090816
  10. PREDNISONE [Suspect]
     Indication: DYSPNOEA
     Dosage: 20; 10 MG, DAILY
     Dates: start: 20090611, end: 20090623
  11. ATIVAN [Concomitant]
  12. FELDENE [Concomitant]
  13. VITAMIN E [Concomitant]
  14. PLAQUENIL [Concomitant]
  15. PACLITAXEL [Suspect]
     Indication: NON-SMALL CELL LUNG CANCER
     Dosage: 310 MG, Q3W, IV
     Route: 042
     Dates: start: 20090609, end: 20090901
  16. MAGNESIUM OXIDE [Concomitant]
  17. OXYCODONE HCL [Concomitant]

REACTIONS (4)
  - HAEMOGLOBIN DECREASED [None]
  - BRONCHOPULMONARY ASPERGILLOSIS [None]
  - BLOOD SODIUM DECREASED [None]
  - HAEMATOCRIT DECREASED [None]
